FAERS Safety Report 8925598 (Version 2)
Quarter: 2013Q1

REPORT INFORMATION
  Report Type: Spontaneous
  Country: US (occurrence: US)
  Receive Date: 20121126
  Receipt Date: 20130124
  Transmission Date: 20140127
  Serious: Yes (Hospitalization, Disabling)
  Sender: FDA-Public Use
  Company Number: US-BAYER-2012-121901

PATIENT
  Age: 29 Year
  Sex: Female

DRUGS (16)
  1. YASMIN [Suspect]
  2. PROMETHAZIN [Concomitant]
     Dosage: 25 MG, UNK
  3. NEURONTIN [Concomitant]
  4. NEURONTIN [Concomitant]
  5. FENTANYL [Concomitant]
  6. DILAUDID [Concomitant]
  7. CYMBALTA [Concomitant]
     Indication: PHANTOM PAIN
     Dosage: 60 MG, BID
  8. CYMBALTA [Concomitant]
     Indication: DEPRESSION
  9. BACLOFEN [Concomitant]
     Dosage: 10 MG, Q (EVERY) 8
  10. GABAPENTIN [Concomitant]
     Dosage: 1600 MG, TID
  11. DOCUSATE [Concomitant]
     Dosage: 100 MG, BID
  12. SIMETHICONE [Concomitant]
     Dosage: 80 MG, TID
  13. METHADONE [Concomitant]
     Dosage: 10 MG, 2 BID
  14. DURAGESIC [Concomitant]
     Dosage: 150 MCG CHANGE Q 72 HOURS
  15. OXYIR [Concomitant]
     Indication: PAIN
     Dosage: 10 MG, Q4HR AS NEEDED
  16. BACTRIM [Concomitant]
     Indication: PROPHYLAXIS URINARY TRACT INFECTION
     Dosage: UNK,  Q MONDAY, WEDNESDAY AND FRIDAY

REACTIONS (1)
  - Peripheral artery thrombosis [None]
